FAERS Safety Report 9059949 (Version 1)
Quarter: 2013Q1

REPORT INFORMATION
  Report Type: Spontaneous
  Country: US (occurrence: US)
  Receive Date: 20130212
  Receipt Date: 20130212
  Transmission Date: 20140127
  Serious: No
  Sender: FDA-Public Use
  Company Number: US-FOUGERA-2012FO001424

PATIENT
  Sex: Male

DRUGS (1)
  1. OXISTAT [Suspect]
     Indication: FUNGAL INFECTION
     Route: 061
     Dates: start: 20121214

REACTIONS (2)
  - Application site pruritus [Recovered/Resolved]
  - Application site erythema [Not Recovered/Not Resolved]
